FAERS Safety Report 25531044 (Version 1)
Quarter: 2025Q3

REPORT INFORMATION
  Report Type: Spontaneous
  Country: EU (occurrence: EU)
  Receive Date: 20250708
  Receipt Date: 20250708
  Transmission Date: 20251020
  Serious: Yes (Other)
  Sender: TEVA
  Company Number: EU-TEVA-VS-3348781

PATIENT
  Age: 50 Year
  Sex: Female

DRUGS (5)
  1. OXALIPLATIN [Suspect]
     Active Substance: OXALIPLATIN
     Indication: Peripheral T-cell lymphoma unspecified
     Route: 065
  2. GEMCITABINE [Suspect]
     Active Substance: GEMCITABINE
     Indication: Peripheral T-cell lymphoma unspecified
     Route: 065
  3. VALEMETOSTAT TOSYLATE [Suspect]
     Active Substance: VALEMETOSTAT TOSYLATE
     Indication: Peripheral T-cell lymphoma unspecified recurrent
     Route: 065
  4. ACIMTAMIG [Suspect]
     Active Substance: ACIMTAMIG
     Indication: Peripheral T-cell lymphoma unspecified
     Route: 065
  5. CYTARABINE [Suspect]
     Active Substance: CYTARABINE
     Indication: Peripheral T-cell lymphoma unspecified
     Route: 065

REACTIONS (4)
  - Drug ineffective [Unknown]
  - Off label use [Unknown]
  - Dysgeusia [Unknown]
  - Skin lesion [Recovered/Resolved]
